FAERS Safety Report 8989763 (Version 3)
Quarter: 2013Q4

REPORT INFORMATION
  Report Type: Spontaneous
  Country: CA (occurrence: CA)
  Receive Date: 20121228
  Receipt Date: 20131211
  Transmission Date: 20140711
  Serious: Yes (Hospitalization, Congenital Anomaly, Other)
  Sender: FDA-Public Use
  Company Number: CA-ASTRAZENECA-2012SE95481

PATIENT
  Age: 0 Week
  Sex: Male
  Weight: 2.9 kg

DRUGS (4)
  1. SEROQUEL [Suspect]
     Indication: BIPOLAR DISORDER
     Route: 064
  2. SEROQUEL [Suspect]
     Indication: BIPOLAR DISORDER
     Route: 064
  3. ATIVAN [Concomitant]
     Indication: ANXIETY
     Dosage: 0.5 MG PRN VERY SELDOM (5 - 6 TIMES) TAKEN DURING THE PREGNANCY
  4. ATIVAN [Concomitant]
     Indication: INSOMNIA
     Dosage: 0.5 MG PRN VERY SELDOM (5 - 6 TIMES) TAKEN DURING THE PREGNANCY

REACTIONS (6)
  - Cataract congenital [Unknown]
  - Strabismus congenital [Unknown]
  - Food allergy [Unknown]
  - Haematochezia [Unknown]
  - Eczema [Unknown]
  - Food allergy [Unknown]
